FAERS Safety Report 6726095-8 (Version None)
Quarter: 2010Q2

REPORT INFORMATION
  Report Type: 
  Country: None (occurrence: None)
  Receive Date: 20100514
  Receipt Date: 20100507
  Transmission Date: 20101027
  Serious: Yes (Life-Threatening)
  Sender: FDA-Public Use
  Company Number: GB-TEVA-233988ISR

PATIENT
  Age: 56 Year
  Sex: Male
  Weight: 84 kg

DRUGS (1)
  1. DICLOFENAC [Suspect]
     Indication: ANAL INFLAMMATION
     Dates: start: 20100331, end: 20100418

REACTIONS (2)
  - ORGAN FAILURE [None]
  - RENAL DISORDER [None]
